FAERS Safety Report 24815887 (Version 1)
Quarter: 2025Q1

REPORT INFORMATION
  Report Type: Report from Study
  Country: CN (occurrence: CN)
  Receive Date: 20250107
  Receipt Date: 20250107
  Transmission Date: 20250408
  Serious: Yes (Congenital Anomaly, Other)
  Sender: JOHNSON AND JOHNSON
  Company Number: CN-JNJFOC-20250101405

PATIENT

DRUGS (1)
  1. TOPAMAX [Suspect]
     Active Substance: TOPIRAMATE
     Indication: Product used for unknown indication
     Route: 048

REACTIONS (57)
  - Osmotic demyelination syndrome [Unknown]
  - Arnold-Chiari malformation [Unknown]
  - Patent ductus arteriosus [Unknown]
  - Low set ears [Unknown]
  - Meningomyelocele [Unknown]
  - Spina bifida [Unknown]
  - Craniosynostosis [Unknown]
  - Hypospadias [Unknown]
  - Ventricular septal defect [Unknown]
  - Pyloric stenosis [Unknown]
  - Autism spectrum disorder [Unknown]
  - Foetal death [Unknown]
  - Renal tubular dysfunction [Unknown]
  - Iridocyclitis [Unknown]
  - Open angle glaucoma [Unknown]
  - Choroidal effusion [Unknown]
  - Uveitis [Unknown]
  - Retinal detachment [Unknown]
  - Retinal vein occlusion [Unknown]
  - Blindness transient [Unknown]
  - Colour blindness [Unknown]
  - Gitelman^s syndrome [Unknown]
  - Atrial septal defect [Unknown]
  - Dysmorphism [Unknown]
  - Chordee [Unknown]
  - Atonic urinary bladder [Unknown]
  - Astigmatism [Unknown]
  - Torticollis [Unknown]
  - Retrognathia [Unknown]
  - Optic nerve disorder [Unknown]
  - Hyperacusis [Unknown]
  - Eustachian tube dysfunction [Unknown]
  - Medication overuse headache [Unknown]
  - Hypotonia [Unknown]
  - Heat stroke [Unknown]
  - Alice in wonderland syndrome [Unknown]
  - Dissociative disorder [Unknown]
  - Eating disorder [Unknown]
  - Psychotic disorder [Unknown]
  - Somnambulism [Unknown]
  - Staring [Unknown]
  - Personality change [Unknown]
  - Depersonalisation/derealisation disorder [Unknown]
  - Social avoidant behaviour [Unknown]
  - Granuloma annulare [Unknown]
  - Multiple-drug resistance [Unknown]
  - Crying [Unknown]
  - Drug intolerance [Unknown]
  - Therapeutic response unexpected [Unknown]
  - Premature delivery [Unknown]
  - Premature rupture of membranes [Unknown]
  - Hypocitraturia [Unknown]
  - Halo vision [Unknown]
  - Ciliary body disorder [Unknown]
  - Retinal disorder [Unknown]
  - Visual snow syndrome [Unknown]
  - Photophobia [Unknown]
